FAERS Safety Report 6563392-3 (Version None)
Quarter: 2010Q1

REPORT INFORMATION
  Report Type: 
  Country: None (occurrence: None)
  Receive Date: 20100130
  Receipt Date: 20091215
  Transmission Date: 20100710
  Serious: No
  Sender: FDA-Public Use
  Company Number: US-ABBOTT-09P-163-0614986-00

PATIENT
  Sex: Male
  Weight: 90.8 kg

DRUGS (2)
  1. HUMIRA [Suspect]
     Indication: RHEUMATOID ARTHRITIS
     Dates: start: 20080401
  2. LEUFLONOMIDE [Concomitant]
     Indication: RHEUMATOID ARTHRITIS

REACTIONS (2)
  - INJECTION SITE ERYTHEMA [None]
  - INJECTION SITE INDURATION [None]
